FAERS Safety Report 9653866 (Version 1)
Quarter: 2013Q4

REPORT INFORMATION
  Report Type: Spontaneous
  Country: US (occurrence: US)
  Receive Date: 20131029
  Receipt Date: 20131029
  Transmission Date: 20140711
  Serious: No
  Sender: FDA-Public Use
  Company Number: US-BIOGENIDEC-2013BI081545

PATIENT
  Age: 39 Year
  Sex: Female

DRUGS (9)
  1. TECFIDERA [Suspect]
     Indication: MULTIPLE SCLEROSIS
     Route: 048
     Dates: start: 20130726
  2. TECFIDERA [Suspect]
     Indication: MULTIPLE SCLEROSIS
     Route: 048
     Dates: end: 20130811
  3. MAXALT [Concomitant]
  4. TOPIRAMATE [Concomitant]
  5. PROMETHAZINE [Concomitant]
  6. CITALOPRAM [Concomitant]
  7. METOPROLOL [Concomitant]
  8. VITAMIN D3 [Concomitant]
  9. PRIMROSE OIL [Concomitant]

REACTIONS (2)
  - Abdominal pain [Recovered/Resolved]
  - Vomiting [Recovered/Resolved]
